FAERS Safety Report 9103997 (Version 1)
Quarter: 2013Q1

REPORT INFORMATION
  Report Type: Spontaneous
  Country: US (occurrence: US)
  Receive Date: 20130219
  Receipt Date: 20130219
  Transmission Date: 20140127
  Serious: No
  Sender: FDA-Public Use
  Company Number: US-PFIZER INC-2013060805

PATIENT
  Age: 50 Year
  Sex: Female
  Weight: 74 kg

DRUGS (2)
  1. LYRICA [Suspect]
     Indication: NERVE COMPRESSION
     Dosage: 300 MG, 2X/DAY
     Dates: start: 2011, end: 201302
  2. DILAUDID [Suspect]
     Indication: PAIN IN EXTREMITY
     Dosage: 4 MG, 4X/DAY

REACTIONS (4)
  - Pain in extremity [Unknown]
  - Renal pain [Recovered/Resolved]
  - Oedema [Recovered/Resolved]
  - Dysuria [Recovered/Resolved]
